FAERS Safety Report 7088420-0 (Version None)
Quarter: 2010Q4

REPORT INFORMATION
  Report Type: 
  Country: None (occurrence: None)
  Receive Date: 20101108
  Receipt Date: 20101029
  Transmission Date: 20110411
  Serious: Yes (Life-Threatening)
  Sender: FDA-Public Use
  Company Number: DE-ROCHE-730124

PATIENT
  Sex: Female
  Weight: 50 kg

DRUGS (8)
  1. HERCEPTIN [Suspect]
     Dosage: LAST APPLICATION PRIOR TO EVENT WAS ON 6 SEP 2010.
     Route: 042
  2. MORPHINE [Concomitant]
     Indication: PAIN
     Route: 048
  3. METAMIZOL [Concomitant]
     Indication: PAIN
     Route: 048
  4. AMLODIPINE [Concomitant]
     Indication: HYPERTENSION
     Route: 048
  5. CANDESARTAN CILEXETIL [Concomitant]
     Indication: HYPERTENSION
     Route: 048
  6. METOCLOPRAMID [Concomitant]
     Indication: NAUSEA
     Route: 048
  7. LORAZEPAM [Concomitant]
     Route: 048
  8. PANTOPRAZOLE SODIUM [Concomitant]
     Indication: PROPHYLAXIS
     Route: 048

REACTIONS (1)
  - ACUTE RESPIRATORY DISTRESS SYNDROME [None]
